FAERS Safety Report 20616676 (Version 2)
Quarter: 2022Q1

REPORT INFORMATION
  Report Type: Spontaneous
  Country: CN (occurrence: CN)
  Receive Date: 20220321
  Receipt Date: 20220324
  Transmission Date: 20220423
  Serious: Yes (Other)
  Sender: FDA-Public Use
  Company Number: CN-PFIZER INC-202200390348

PATIENT
  Age: 14 Month
  Sex: Male
  Weight: 12 kg

DRUGS (5)
  1. AZITHROMYCIN [Suspect]
     Active Substance: AZITHROMYCIN
     Indication: Pneumonia
     Dosage: 0.12 G, 1X/DAY
     Route: 041
     Dates: start: 20220221, end: 20220227
  2. DESLORATADINE [Suspect]
     Active Substance: DESLORATADINE
     Indication: Pneumonia
     Dosage: 0.25 G, 1X/DAY
     Route: 048
     Dates: start: 20220221, end: 20220228
  3. CEFMETAZOLE SODIUM [Suspect]
     Active Substance: CEFMETAZOLE SODIUM
     Indication: Pneumonia
     Dosage: 0.6 G, 2X/DAY
     Route: 041
     Dates: start: 20220221, end: 20220228
  4. SODIUM CHLORIDE [Concomitant]
     Active Substance: SODIUM CHLORIDE
     Indication: Vehicle solution use
     Dosage: 100 ML, 2X/DAY
     Route: 041
     Dates: start: 20220221, end: 20220227
  5. DEXTROSE [Concomitant]
     Active Substance: DEXTROSE
     Indication: Vehicle solution use
     Dosage: 150 ML, 1X/DAY
     Route: 041
     Dates: start: 20220221, end: 20220227

REACTIONS (3)
  - Diarrhoea [Recovering/Resolving]
  - Mucous stools [Recovered/Resolved]
  - Off label use [Unknown]

NARRATIVE: CASE EVENT DATE: 20220221
